FAERS Safety Report 17046738 (Version 1)
Quarter: 2019Q4

REPORT INFORMATION
  Report Type: Spontaneous
  Country: US (occurrence: US)
  Receive Date: 20191119
  Receipt Date: 20191119
  Transmission Date: 20200122
  Serious: Yes (Other)
  Sender: FDA-Public Use
  Company Number: US-ROCHE-2471525

PATIENT
  Sex: Female

DRUGS (1)
  1. OCREVUS [Suspect]
     Active Substance: OCRELIZUMAB
     Indication: MULTIPLE SCLEROSIS
     Route: 042
     Dates: start: 20181128

REACTIONS (6)
  - Vertigo [Unknown]
  - Multiple sclerosis relapse [Unknown]
  - Stress [Unknown]
  - Paraesthesia [Unknown]
  - Feeling abnormal [Unknown]
  - Memory impairment [Unknown]
